FAERS Safety Report 4462373-3 (Version None)
Quarter: 2004Q3

REPORT INFORMATION
  Report Type: 
  Country: None (occurrence: None)
  Receive Date: 20040923
  Receipt Date: 20040913
  Transmission Date: 20050211
  Serious: Yes (Other)
  Sender: FDA-Public Use
  Company Number: HQWYE100616SEP04

PATIENT
  Age: 12 Year
  Sex: Female

DRUGS (1)
  1. AMIODARONE HCL [Suspect]
     Route: 064

REACTIONS (6)
  - CONGENITAL NYSTAGMUS [None]
  - DRUG EXPOSURE DURING PREGNANCY [None]
  - DYSCALCULIA [None]
  - DYSGRAPHIA [None]
  - NEUROTOXICITY [None]
  - READING DISORDER [None]
